FAERS Safety Report 16487424 (Version 1)
Quarter: 2019Q3

REPORT INFORMATION
  Report Type: Spontaneous
  Country: US (occurrence: US)
  Receive Date: 20190626
  Receipt Date: 20190626
  Transmission Date: 20191004
  Serious: Yes (Hospitalization)
  Sender: FDA-Public Use
  Company Number: None

PATIENT
  Age: 65 Year
  Sex: Female
  Weight: 54.04 kg

DRUGS (1)
  1. CAPECITABINE. [Suspect]
     Active Substance: CAPECITABINE
     Indication: ACUTE MYELOID LEUKAEMIA
     Dates: start: 20190514, end: 20190625

REACTIONS (1)
  - Hospice care [None]

NARRATIVE: CASE EVENT DATE: 20190625
